FAERS Safety Report 9111434 (Version 1)
Quarter: 2013Q1

REPORT INFORMATION
  Report Type: Spontaneous
  Country: US (occurrence: US)
  Receive Date: 20130219
  Receipt Date: 20130219
  Transmission Date: 20140127
  Serious: No
  Sender: FDA-Public Use
  Company Number: US-BRISTOL-MYERS SQUIBB COMPANY-17101395

PATIENT
  Age: 44 Year
  Sex: Female
  Weight: 58.96 kg

DRUGS (11)
  1. ORENCIA FOR INJ 250 MG/VIAL [Suspect]
     Dosage: 1DF= 750MG (3 VIALS) PER 4 WKS
     Route: 042
  2. PREDNISONE [Concomitant]
     Dosage: TABS
  3. PLAQUENIL [Concomitant]
     Dosage: TABS
  4. FOLIC ACID [Concomitant]
     Dosage: TABS
  5. ACTONEL [Concomitant]
     Dosage: TABS
  6. GABAPENTIN [Concomitant]
     Dosage: TABS
  7. NEFAZODONE TABS [Concomitant]
  8. MULTIVITAMIN [Concomitant]
     Dosage: CAPS
  9. CALCIUM [Concomitant]
     Dosage: 1DF= 500-UNITS NOS TABS
  10. KETOPROFEN [Concomitant]
     Dosage: CAPS
  11. SYNTHROID [Concomitant]
     Dosage: TABS

REACTIONS (1)
  - Drug ineffective [Unknown]
